FAERS Safety Report 4708919-9 (Version None)
Quarter: 2005Q3

REPORT INFORMATION
  Report Type: 
  Country: None (occurrence: None)
  Receive Date: 20050705
  Receipt Date: 20050623
  Transmission Date: 20060218
  Serious: Yes (Life-Threatening, Hospitalization)
  Sender: FDA-Public Use
  Company Number: 200511914GDS

PATIENT
  Age: 72 Year
  Sex: Female
  Weight: 68 kg

DRUGS (7)
  1. ASPIRIN [Suspect]
     Dosage: 400 MG, TOTAL DAILY , ORAL
     Route: 048
  2. MEFENAMIC ACID [Suspect]
     Dosage: 1500 MG, TOTAL DAILY, ORAL
     Route: 048
     Dates: start: 20040801, end: 20050404
  3. CONCOR [Concomitant]
  4. DIOVAN HCT [Concomitant]
  5. HYDERGIN ^SANDOZ^ [Concomitant]
  6. OXAZEPAM [Concomitant]
  7. LESCOL FORTE [Concomitant]

REACTIONS (21)
  - ANOREXIA [None]
  - BLOOD PRESSURE DECREASED [None]
  - BODY TEMPERATURE INCREASED [None]
  - CARDIAC FAILURE ACUTE [None]
  - CONSTIPATION [None]
  - DELIRIUM [None]
  - DIARRHOEA [None]
  - DRUG TOXICITY [None]
  - FALL [None]
  - FLUID OVERLOAD [None]
  - HYPERTENSION [None]
  - HYPERTENSIVE CRISIS [None]
  - IATROGENIC INJURY [None]
  - LUNG INFILTRATION [None]
  - PRODUCTIVE COUGH [None]
  - PULMONARY OEDEMA [None]
  - RENAL FAILURE ACUTE [None]
  - RESPIRATORY TRACT INFECTION [None]
  - SEPSIS [None]
  - SYSTEMIC INFLAMMATORY RESPONSE SYNDROME [None]
  - TACHYARRHYTHMIA [None]
